FAERS Safety Report 13230356 (Version 1)
Quarter: 2017Q1

REPORT INFORMATION
  Report Type: Spontaneous
  Country: US (occurrence: US)
  Receive Date: 20170214
  Receipt Date: 20170214
  Transmission Date: 20170428
  Serious: Yes (Hospitalization)
  Sender: FDA-Public Use
  Company Number: None

PATIENT
  Age: 31 Year
  Sex: Female
  Weight: 60.75 kg

DRUGS (10)
  1. AMBIEN [Concomitant]
     Active Substance: ZOLPIDEM TARTRATE
  2. PROZAC [Concomitant]
     Active Substance: FLUOXETINE HYDROCHLORIDE
  3. ADDERALL [Concomitant]
     Active Substance: AMPHETAMINE ASPARTATE\AMPHETAMINE SULFATE\DEXTROAMPHETAMINE SACCHARATE\DEXTROAMPHETAMINE SULFATE
  4. VYVANSSE [Concomitant]
  5. ABILIFY [Suspect]
     Active Substance: ARIPIPRAZOLE
     Indication: BIPOLAR I DISORDER
     Dosage: ?          QUANTITY:2 TABLET(S);?
     Route: 048
     Dates: start: 20160929, end: 20161125
  6. VISTARIL [Concomitant]
     Active Substance: HYDROXYZINE PAMOATE
  7. TRAZODONE [Concomitant]
     Active Substance: TRAZODONE HYDROCHLORIDE
  8. GEODON [Concomitant]
     Active Substance: ZIPRASIDONE HYDROCHLORIDE\ZIPRASIDONE MESYLATE
  9. TRAMADOL. [Concomitant]
     Active Substance: TRAMADOL
  10. DEPAKOTE ER [Concomitant]
     Active Substance: DIVALPROEX SODIUM

REACTIONS (15)
  - Dizziness [None]
  - Insomnia [None]
  - Speech disorder [None]
  - Amnesia [None]
  - Gait disturbance [None]
  - Restlessness [None]
  - Confusional state [None]
  - Mental impairment [None]
  - Delusion [None]
  - Psychotic disorder [None]
  - Hallucination [None]
  - Muscle spasms [None]
  - Tremor [None]
  - Seizure [None]
  - Akathisia [None]

NARRATIVE: CASE EVENT DATE: 20161123
